FAERS Safety Report 16754840 (Version 1)
Quarter: 2019Q4

REPORT INFORMATION
  Report Type: Spontaneous
  Country: US (occurrence: US)
  Receive Date: 20190828
  Receipt Date: 20190828
  Transmission Date: 20200122
  Serious: Yes (Life-Threatening, Disabling, Other)
  Sender: FDA-Public Use
  Company Number: None

PATIENT
  Age: 67 Year
  Sex: Male
  Weight: 74.25 kg

DRUGS (3)
  1. VALIUM [Concomitant]
     Active Substance: DIAZEPAM
  2. HYDROCODONE [Concomitant]
     Active Substance: HYDROCODONE
  3. METHADONE [Suspect]
     Active Substance: METHADONE HYDROCHLORIDE
     Indication: PAIN
     Dosage: ?          QUANTITY:1 TABLET(S);?
     Route: 048

REACTIONS (7)
  - Muscle spasms [None]
  - Drug withdrawal syndrome [None]
  - Histamine abnormal [None]
  - Hypertension [None]
  - Headache [None]
  - Emotional distress [None]
  - Suicidal ideation [None]

NARRATIVE: CASE EVENT DATE: 20180101
